FAERS Safety Report 14298096 (Version 6)
Quarter: 2018Q3

REPORT INFORMATION
  Report Type: Spontaneous
  Country: SK (occurrence: SK)
  Receive Date: 20171218
  Receipt Date: 20180813
  Transmission Date: 20181010
  Serious: Yes (Life-Threatening, Hospitalization, Other)
  Sender: FDA-Public Use
  Company Number: SK-PFIZER INC-2017534360

PATIENT
  Age: 53 Year
  Sex: Female

DRUGS (12)
  1. MYCOPHENOLATE MOFETIL. [Suspect]
     Active Substance: MYCOPHENOLATE MOFETIL
  2. CICLOSPORIN [Suspect]
     Active Substance: CYCLOSPORINE
     Dosage: 0?25 MG
     Route: 065
  3. CICLOSPORIN [Suspect]
     Active Substance: CYCLOSPORINE
     Dosage: 25 MG?0?50 MG
  4. MYCOPHENOLATE MOFETIL. [Suspect]
     Active Substance: MYCOPHENOLATE MOFETIL
     Indication: IMMUNOSUPPRESSION
     Dosage: 1000 MG?0?1000 MG
  5. MYCOPHENOLATE MOFETIL. [Suspect]
     Active Substance: MYCOPHENOLATE MOFETIL
  6. METHYLPREDNISOLONE. [Suspect]
     Active Substance: METHYLPREDNISOLONE
     Indication: IMMUNOSUPPRESSION
     Dosage: UNK
     Route: 065
  7. MYCOPHENOLATE MOFETIL. [Suspect]
     Active Substance: MYCOPHENOLATE MOFETIL
     Dosage: 0?1000 MG
     Route: 065
  8. CICLOSPORIN [Suspect]
     Active Substance: CYCLOSPORINE
     Dosage: 0?100 MG
     Route: 065
  9. MYCOPHENOLATE MOFETIL. [Suspect]
     Active Substance: MYCOPHENOLATE MOFETIL
     Dosage: 0?1000 MG
     Route: 065
  10. CICLOSPORIN [Suspect]
     Active Substance: CYCLOSPORINE
     Dosage: 25 MG?0?50 MG
  11. CICLOSPORIN [Suspect]
     Active Substance: CYCLOSPORINE
     Indication: IMMUNOSUPPRESSION
     Dosage: 25 MG?0?50 MG
  12. MYCOPHENOLATE MOFETIL. [Suspect]
     Active Substance: MYCOPHENOLATE MOFETIL
     Dosage: 1000 MG, 2X/DAY

REACTIONS (16)
  - Tuberculosis gastrointestinal [Recovered/Resolved]
  - Metabolic acidosis [Recovered/Resolved]
  - Multiple organ dysfunction syndrome [Recovered/Resolved]
  - Acute respiratory distress syndrome [Recovered/Resolved]
  - Septic shock [Recovered/Resolved]
  - Pulmonary tuberculosis [Unknown]
  - Tuberculosis [Unknown]
  - Aspergillus infection [Recovered/Resolved]
  - Pneumothorax [Unknown]
  - Staphylococcal infection [Recovered/Resolved]
  - Mycobacterial infection [Recovered/Resolved]
  - Respiratory acidosis [Recovered/Resolved]
  - Pseudomonas infection [Unknown]
  - Pericardial effusion [Unknown]
  - Acute kidney injury [Recovered/Resolved]
  - Superinfection [Recovered/Resolved]
